FAERS Safety Report 7850479-8 (Version None)
Quarter: 2011Q4

REPORT INFORMATION
  Report Type: 
  Country: None (occurrence: None)
  Receive Date: 20111026
  Receipt Date: 20111026
  Transmission Date: 20120403
  Serious: Yes (Hospitalization, Other)
  Sender: FDA-Public Use
  Company Number: None

PATIENT
  Age: 52 Year
  Sex: Female
  Weight: 104.32 kg

DRUGS (1)
  1. HUMIRA [Suspect]
     Indication: RASH PUSTULAR
     Dates: start: 20100701, end: 20100918

REACTIONS (4)
  - ALOPECIA [None]
  - ARTHRALGIA [None]
  - PSORIASIS [None]
  - PAIN [None]
